FAERS Safety Report 6825376-7 (Version None)
Quarter: 2010Q3

REPORT INFORMATION
  Report Type: 
  Country: None (occurrence: None)
  Receive Date: 20100708
  Receipt Date: 20061228
  Transmission Date: 20110219
  Serious: No
  Sender: FDA-Public Use
  Company Number: US-PFIZER INC-2007001126

PATIENT
  Sex: Female

DRUGS (1)
  1. CHANTIX [Suspect]

REACTIONS (6)
  - ASTHENIA [None]
  - BACK PAIN [None]
  - HEART RATE INCREASED [None]
  - NAUSEA [None]
  - PAIN IN EXTREMITY [None]
  - URINARY TRACT INFECTION [None]
